FAERS Safety Report 10623850 (Version 1)
Quarter: 2014Q4

REPORT INFORMATION
  Report Type: Spontaneous
  Country: US (occurrence: US)
  Receive Date: 20141203
  Receipt Date: 20141203
  Transmission Date: 20150529
  Serious: No
  Sender: FDA-Public Use
  Company Number: US-SA-2014SA006729

PATIENT
  Age: 53 Year
  Sex: Male

DRUGS (3)
  1. LANTHANUM CARBONATE. [Concomitant]
     Active Substance: LANTHANUM CARBONATE
     Dosage: WITH MEALS
  2. SENSIPAR [Concomitant]
     Active Substance: CINACALCET HYDROCHLORIDE
  3. RENVELA [Suspect]
     Active Substance: SEVELAMER CARBONATE
     Indication: HYPERPHOSPHATAEMIA
     Dosage: TWO 800 MG TABLETS TID WITH MEALS AND TWO TABLETS WITH TWO SNACKS.
     Route: 048

REACTIONS (2)
  - Hyperphosphataemia [Unknown]
  - Herpes zoster [Unknown]
